FAERS Safety Report 18189598 (Version 1)
Quarter: 2020Q3

REPORT INFORMATION
  Report Type: Report from Study
  Country: None (occurrence: BR)
  Receive Date: 20200825
  Receipt Date: 20200825
  Transmission Date: 20201103
  Serious: Yes (Hospitalization, Other)
  Sender: FDA-Public Use
  Company Number: BR-ABBVIE-20K-020-3534880-00

PATIENT
  Age: 47 Year
  Sex: Female
  Weight: 42 kg

DRUGS (4)
  1. HUMIRA [Suspect]
     Active Substance: ADALIMUMAB
     Dosage: LOADING DOSE ? WEEK 02
     Route: 058
     Dates: start: 20191220, end: 20191220
  2. HUMIRA [Suspect]
     Active Substance: ADALIMUMAB
     Indication: CROHN^S DISEASE
     Dosage: LOADING DOSE ? WEEK 00
     Route: 058
     Dates: start: 20191206, end: 20191206
  3. PROPRANOLOL [Concomitant]
     Active Substance: PROPRANOLOL HYDROCHLORIDE
     Indication: HYPERTENSION
     Dosage: 1 TABLET IN MORNING, 1 TABLET AT NIGHT
     Route: 048
     Dates: start: 2009
  4. HUMIRA [Suspect]
     Active Substance: ADALIMUMAB
     Route: 058

REACTIONS (15)
  - Gastrointestinal inflammation [Unknown]
  - Musculoskeletal chest pain [Not Recovered/Not Resolved]
  - Mobility decreased [Unknown]
  - Skin discolouration [Unknown]
  - Back pain [Not Recovered/Not Resolved]
  - Gastritis [Unknown]
  - Sitting disability [Unknown]
  - Malaise [Recovering/Resolving]
  - Pain [Recovering/Resolving]
  - Aphasia [Unknown]
  - Painful respiration [Unknown]
  - Musculoskeletal stiffness [Unknown]
  - Abdominal distension [Recovering/Resolving]
  - Gastrointestinal infection [Unknown]
  - Abdominal pain [Not Recovered/Not Resolved]

NARRATIVE: CASE EVENT DATE: 20200617
